FAERS Safety Report 5403530-9 (Version None)
Quarter: 2007Q3

REPORT INFORMATION
  Report Type: 
  Country: None (occurrence: None)
  Receive Date: 20070713
  Receipt Date: 20070518
  Transmission Date: 20080115
  Serious: Yes (Other)
  Sender: FDA-Public Use
  Company Number: US-JNJFOC-20070400501

PATIENT
  Age: 30 Year
  Sex: Female
  Weight: 86.1834 kg

DRUGS (9)
  1. ORTHO EVRA [Suspect]
     Indication: MENORRHAGIA
     Dosage: TRANSDERMAL
     Route: 062
     Dates: start: 20041101, end: 20050401
  2. ULTRAM [Concomitant]
  3. NEXIUM [Concomitant]
  4. PREVACID [Concomitant]
  5. CELEXA [Concomitant]
  6. ALLEGRA [Concomitant]
  7. IRON (IRON) [Concomitant]
  8. COLACE (DOCUSATE SODIUM) [Concomitant]
  9. ZANAFLEX [Concomitant]

REACTIONS (2)
  - DEEP VEIN THROMBOSIS [None]
  - OFF LABEL USE [None]
